FAERS Safety Report 11933998 (Version 2)
Quarter: 2016Q1

REPORT INFORMATION
  Report Type: Report from Study
  Country: AR (occurrence: AR)
  Receive Date: 20160121
  Receipt Date: 20160218
  Transmission Date: 20160526
  Serious: Yes (Other)
  Sender: FDA-Public Use
  Company Number: PHHY2016AR005248

PATIENT
  Sex: Female

DRUGS (4)
  1. ONBREZ BREEZHALER [Suspect]
     Active Substance: INDACATEROL
     Indication: CHRONIC OBSTRUCTIVE PULMONARY DISEASE
     Dosage: 150 UG, QD (IN THE MORNING)
     Route: 055
     Dates: start: 201501, end: 201503
  2. ONBREZ BREEZHALER [Suspect]
     Active Substance: INDACATEROL
     Dosage: EACH MORNING
     Route: 065
  3. NEUMOTEROL [Concomitant]
     Active Substance: BUDESONIDE\FORMOTEROL
     Indication: PRODUCT USED FOR UNKNOWN INDICATION
     Dosage: STARTED SINCE BEFORE 2006
     Route: 065
  4. SPIRIVA [Concomitant]
     Active Substance: TIOTROPIUM BROMIDE MONOHYDRATE
     Indication: PRODUCT USED FOR UNKNOWN INDICATION
     Dosage: 2.5 UG, QHS (AT NIGHT)
     Route: 055

REACTIONS (2)
  - Pulmonary mass [Recovered/Resolved]
  - Pigmentation disorder [Unknown]
